FAERS Safety Report 13432485 (Version 3)
Quarter: 2020Q4

REPORT INFORMATION
  Report Type: Spontaneous
  Country: US (occurrence: US)
  Receive Date: 20170412
  Receipt Date: 20201013
  Transmission Date: 20210113
  Serious: Yes (Death, Hospitalization)
  Sender: FDA-Public Use
  Company Number: US-JNJFOC-20170332505

PATIENT
  Age: 79 Year
  Sex: Female

DRUGS (3)
  1. XARELTO [Suspect]
     Active Substance: RIVAROXABAN
     Indication: ATRIAL FIBRILLATION
     Route: 048
     Dates: end: 20150429
  2. XARELTO [Suspect]
     Active Substance: RIVAROXABAN
     Indication: CEREBROVASCULAR ACCIDENT PROPHYLAXIS
     Route: 048
     Dates: start: 20150101, end: 20150429
  3. XARELTO [Suspect]
     Active Substance: RIVAROXABAN
     Indication: THROMBOSIS PROPHYLAXIS

REACTIONS (4)
  - Contusion [Recovering/Resolving]
  - Ecchymosis [Recovering/Resolving]
  - Fall [Unknown]
  - Thalamus haemorrhage [Fatal]

NARRATIVE: CASE EVENT DATE: 20140822
